FAERS Safety Report 6880472-3 (Version None)
Quarter: 2010Q3

REPORT INFORMATION
  Report Type: 
  Country: None (occurrence: None)
  Receive Date: 20100727
  Receipt Date: 20100715
  Transmission Date: 20110219
  Serious: Yes (Hospitalization)
  Sender: FDA-Public Use
  Company Number: A0870640A

PATIENT
  Sex: Female

DRUGS (6)
  1. LAMICTAL [Suspect]
     Indication: CONVULSION
     Dosage: 250MG TWICE PER DAY
     Route: 048
     Dates: start: 20081101, end: 20090201
  2. LAMICTAL XR [Suspect]
     Indication: CONVULSION
     Dosage: 250MG TWICE PER DAY
     Route: 048
     Dates: start: 20100701
  3. LAMOTRIGINE [Suspect]
     Indication: CONVULSION
     Dosage: 250MG TWICE PER DAY
     Route: 048
     Dates: start: 20090201
  4. AMINO ACIDS [Concomitant]
  5. VITAMINS [Concomitant]
  6. ZOFRAN [Concomitant]

REACTIONS (13)
  - ACCIDENTAL OVERDOSE [None]
  - ANXIETY [None]
  - ASTHENIA [None]
  - CHEST PAIN [None]
  - DRUG INEFFECTIVE [None]
  - DYSPNOEA [None]
  - FATIGUE [None]
  - MALAISE [None]
  - NAUSEA [None]
  - PRODUCT SUBSTITUTION ISSUE [None]
  - RASH [None]
  - SOMNOLENCE [None]
  - STOMATITIS [None]
